FAERS Safety Report 13633804 (Version 1)
Quarter: 2017Q2

REPORT INFORMATION
  Report Type: Spontaneous
  Country: US (occurrence: US)
  Receive Date: 20170531
  Receipt Date: 20170531
  Transmission Date: 20170830
  Serious: No
  Sender: FDA-Public Use
  Company Number: US-ASTELLAS-1579356

PATIENT
  Sex: Female

DRUGS (5)
  1. TARCEVA [Suspect]
     Active Substance: ERLOTINIB HYDROCHLORIDE
     Indication: LUNG NEOPLASM MALIGNANT
     Route: 048
     Dates: start: 20150429
  2. TARCEVA [Suspect]
     Active Substance: ERLOTINIB HYDROCHLORIDE
     Route: 048
     Dates: start: 20150429
  3. OMEPRAZOLE. [Concomitant]
     Active Substance: OMEPRAZOLE
  4. MOTRIN [Concomitant]
     Active Substance: IBUPROFEN
  5. CARBOPLATIN. [Concomitant]
     Active Substance: CARBOPLATIN

REACTIONS (2)
  - Rash [Unknown]
  - Acne [Unknown]
